FAERS Safety Report 10582959 (Version 14)
Quarter: 2015Q4

REPORT INFORMATION
  Report Type: Spontaneous
  Country: US (occurrence: US)
  Receive Date: 20141114
  Receipt Date: 20151109
  Transmission Date: 20160304
  Serious: Yes (Other)
  Sender: FDA-Public Use
  Company Number: US-009507513-1411USA003594

PATIENT
  Age: 21 Year
  Sex: Female
  Weight: 58.5 kg

DRUGS (2)
  1. IMPLANON [Suspect]
     Active Substance: ETONOGESTREL
     Indication: CONTRACEPTION
     Dosage: UNK, LEFT ARM, FIRST IMPLANT
     Route: 059
     Dates: start: 20111114, end: 20150323
  2. DEPO-PROVERA [Concomitant]
     Active Substance: MEDROXYPROGESTERONE ACETATE
     Dosage: UNK

REACTIONS (10)
  - Incorrect drug administration duration [Unknown]
  - Device deployment issue [Recovered/Resolved]
  - General anaesthesia [Recovered/Resolved]
  - Surgery [Recovered/Resolved]
  - Device difficult to use [Recovered/Resolved]
  - Device difficult to use [Recovered/Resolved]
  - Device dislocation [Recovered/Resolved]
  - Complication of device removal [Recovered/Resolved]
  - Medical device complication [Recovered/Resolved]
  - Device difficult to use [Recovered/Resolved]

NARRATIVE: CASE EVENT DATE: 20111114
